FAERS Safety Report 10901172 (Version 4)
Quarter: 2015Q3

REPORT INFORMATION
  Report Type: Report from Study
  Country: US (occurrence: US)
  Receive Date: 20150310
  Receipt Date: 20150904
  Transmission Date: 20151125
  Serious: Yes (Other)
  Sender: FDA-Public Use
  Company Number: US-SA-2015SA027562

PATIENT
  Age: 75 Year
  Sex: Female

DRUGS (3)
  1. LANTUS [Suspect]
     Active Substance: INSULIN GLARGINE
     Indication: DIABETES MELLITUS
     Dosage: DOSE:70 UNIT(S)
     Route: 058
  2. APIDRA SOLOSTAR [Suspect]
     Active Substance: INSULIN GLULISINE
     Indication: TYPE 2 DIABETES MELLITUS
     Dosage: FREQUENCY: 35 U BASE DOSE:35 UNIT(S)
     Route: 065
  3. SOLOSTAR [Suspect]
     Active Substance: DEVICE
     Indication: TYPE 2 DIABETES MELLITUS

REACTIONS (8)
  - Meniscus injury [Unknown]
  - Blood glucose increased [Unknown]
  - Pain [Not Recovered/Not Resolved]
  - Muscle strain [Unknown]
  - Upper limb fracture [Not Recovered/Not Resolved]
  - Hip surgery [Unknown]
  - Gait disturbance [Unknown]
  - Eye laser surgery [Unknown]

NARRATIVE: CASE EVENT DATE: 201412
